FAERS Safety Report 23128130 (Version 1)
Quarter: 2023Q4

REPORT INFORMATION
  Report Type: Report from Study
  Country: US (occurrence: None)
  Receive Date: 20231031
  Receipt Date: 20231031
  Transmission Date: 20240109
  Serious: Yes (Hospitalization, Other)
  Sender: FDA-Public Use
  Company Number: 2023A242592

PATIENT
  Age: 24582 Day
  Sex: Male

DRUGS (1)
  1. LYNPARZA [Suspect]
     Active Substance: OLAPARIB
     Indication: Bone neoplasm
     Route: 048

REACTIONS (3)
  - Myocardial infarction [Unknown]
  - Platelet count decreased [Unknown]
  - Haemoglobin decreased [Unknown]
